FAERS Safety Report 6497168-2 (Version None)
Quarter: 2009Q4

REPORT INFORMATION
  Report Type: 
  Country: None (occurrence: None)
  Receive Date: 20091215
  Receipt Date: 20090605
  Transmission Date: 20100525
  Serious: No
  Sender: FDA-Public Use
  Company Number: A0783208A

PATIENT
  Sex: Male

DRUGS (6)
  1. AVODART [Suspect]
     Indication: BENIGN PROSTATIC HYPERPLASIA
     Dosage: .5MG PER DAY
     Route: 048
     Dates: start: 20080101
  2. FLOMAX [Concomitant]
  3. ACCUPRIL [Concomitant]
  4. ADVAIR DISKUS 100/50 [Concomitant]
  5. PROAIR HFA [Concomitant]
  6. ATROVENT [Concomitant]

REACTIONS (6)
  - ANXIETY [None]
  - DRUG INEFFECTIVE [None]
  - DYSPNOEA [None]
  - DYSURIA [None]
  - ILL-DEFINED DISORDER [None]
  - LIBIDO DECREASED [None]
